FAERS Safety Report 11785012 (Version 2)
Quarter: 2016Q2

REPORT INFORMATION
  Report Type: Spontaneous
  Country: JO (occurrence: JO)
  Receive Date: 20151130
  Receipt Date: 20160405
  Transmission Date: 20160815
  Serious: Yes (Death, Other)
  Sender: FDA-Public Use
  Company Number: JO-SUN PHARMACEUTICAL INDUSTRIES LTD-2015R1-106817

PATIENT
  Age: 5 Year
  Sex: Male

DRUGS (5)
  1. CIS-RETINOIC ACID [Concomitant]
     Active Substance: UNSPECIFIED INGREDIENT
     Indication: PRODUCT USED FOR UNKNOWN INDICATION
     Dosage: 100 MG/M2, DAILY FOR 21 DAYS
     Route: 065
  2. VINCRISTINE [Suspect]
     Active Substance: VINCRISTINE
     Indication: MEDULLOBLASTOMA
     Dosage: (1.5 MG/M^2 DAYS 1, 8, 14) EVERY 6 WEEK
     Route: 065
  3. CISPLATIN. [Suspect]
     Active Substance: CISPLATIN
     Indication: MEDULLOBLASTOMA
     Dosage: (75 MG/M2 DAY 1) EVERY 6 WEEKS
     Route: 065
  4. TEMOZOLOMIDE. [Suspect]
     Active Substance: TEMOZOLOMIDE
     Indication: MEDULLOBLASTOMA
     Dosage: EIGHT CYCLES OF 5 DAYS (200 MG/M2/DAY)
     Route: 065
  5. LOMUSTINE. [Suspect]
     Active Substance: LOMUSTINE
     Indication: MEDULLOBLASTOMA
     Dosage: (75 MG/M^2 DAY 1) EVERY 6 WEEKS
     Route: 065

REACTIONS (5)
  - Deafness neurosensory [Unknown]
  - Renal tubular disorder [Unknown]
  - Disease recurrence [Fatal]
  - Febrile neutropenia [Unknown]
  - Drug ineffective [Unknown]
